FAERS Safety Report 13822639 (Version 1)
Quarter: 2017Q3

REPORT INFORMATION
  Report Type: Spontaneous
  Country: US (occurrence: US)
  Receive Date: 20170801
  Receipt Date: 20170801
  Transmission Date: 20171127
  Serious: Yes (Death, Hospitalization, Disabling, Other)
  Sender: FDA-Public Use
  Company Number: US-IMPAX LABORATORIES, INC-2017-IPXL-02236

PATIENT
  Age: 17 Year
  Sex: Male

DRUGS (5)
  1. PREDNISONE. [Concomitant]
     Active Substance: PREDNISONE
     Dosage: 2 MG/KG, DAILY
     Route: 065
  2. PREDNISONE. [Concomitant]
     Active Substance: PREDNISONE
     Dosage: 1 MG/KG, DAILY
     Route: 065
  3. PREDNISONE. [Concomitant]
     Active Substance: PREDNISONE
     Dosage: 2 MG/KG, DAILY
  4. PREDNISONE. [Concomitant]
     Active Substance: PREDNISONE
     Indication: DRUG REACTION WITH EOSINOPHILIA AND SYSTEMIC SYMPTOMS
     Dosage: 1 MG/KG, DAILY
  5. MINOCYCLINE HYDROCHLORIDE. [Suspect]
     Active Substance: MINOCYCLINE HYDROCHLORIDE
     Indication: FOLLICULITIS
     Dosage: UNK
     Route: 065

REACTIONS (11)
  - Pemphigoid [Fatal]
  - Gastrointestinal haemorrhage [Fatal]
  - Type 1 diabetes mellitus [Fatal]
  - Leg amputation [Fatal]
  - Drug reaction with eosinophilia and systemic symptoms [Fatal]
  - Renal failure [Fatal]
  - Thrombocytopenia [Fatal]
  - Atrial thrombosis [Fatal]
  - Septic shock [Fatal]
  - Autoimmune thyroiditis [Fatal]
  - Multiple organ dysfunction syndrome [Fatal]
